FAERS Safety Report 7531755-5 (Version None)
Quarter: 2011Q2

REPORT INFORMATION
  Report Type: 
  Country: None (occurrence: None)
  Receive Date: 20110601
  Receipt Date: 20110513
  Transmission Date: 20111010
  Serious: Yes (Hospitalization, Other)
  Sender: FDA-Public Use
  Company Number: 2010-3389

PATIENT
  Age: 76 Year
  Sex: Female
  Weight: 85 kg

DRUGS (9)
  1. PRAMIPEXOLE DIHYDROCHLORIDE [Concomitant]
  2. ACTONEL [Concomitant]
  3. CILROTON (DOMPERIDONE) [Concomitant]
  4. VASCACE PLUS (DYNORM PLUS) [Concomitant]
  5. LEVOTHYROXINE SODIUM [Concomitant]
  6. STALEVO (STALEVO) [Concomitant]
  7. PROCYTHOL (SELEGILINE) [Concomitant]
  8. APO-GO PEN (APO-GO) (APOMORPHINE HYDROCHLORIDE) (APOMORHINE HYDROCHLOR [Suspect]
     Indication: PARKINSON'S DISEASE
     Dosage: 16 MG (4 MG, 4 IN 1 D), SUBCUTANEOUS
     Route: 058
     Dates: start: 20090206
  9. REQUIP [Concomitant]

REACTIONS (12)
  - ABNORMAL DREAMS [None]
  - HYPOKALAEMIA [None]
  - HYPERKERATOSIS [None]
  - CRYING [None]
  - PHOBIA [None]
  - PANNICULITIS [None]
  - ECCHYMOSIS [None]
  - GASTROENTERITIS [None]
  - DEPRESSED MOOD [None]
  - INJECTION SITE ERYTHEMA [None]
  - ORTHOSTATIC HYPOTENSION [None]
  - INJECTION SITE NODULE [None]
